FAERS Safety Report 6114287-0 (Version None)
Quarter: 2009Q1

REPORT INFORMATION
  Report Type: 
  Country: None (occurrence: None)
  Receive Date: 20090312
  Receipt Date: 20081106
  Transmission Date: 20090719
  Serious: No
  Sender: FDA-Public Use
  Company Number: US-ABBOTT-08P-163-0486245-00

PATIENT
  Age: 50 Year
  Sex: Female

DRUGS (15)
  1. DEPAKOTE [Suspect]
     Indication: DRUG USE FOR UNKNOWN INDICATION
     Dates: start: 20080101, end: 20080101
  2. LEVOSALBUTAMOL [Suspect]
     Indication: ASTHMA
     Dosage: UDV; 1.25MG/3ML, EVERY 4 HOURS AS NEEDED
     Route: 055
     Dates: start: 20040101
  3. LEVOSALBUTAMOL [Suspect]
     Dosage: 1.25MG/3ML, EVERY 4-8 HOURS
     Route: 055
     Dates: start: 20060101
  4. LEVOSALBUTAMOL [Suspect]
     Dosage: 1.25MG/3ML, AS NEEDED
     Route: 055
     Dates: start: 20080821
  5. LEVOSALBUTAMOL TARTRATE [Suspect]
     Indication: ASTHMA
     Dosage: 45 MCG; 90 MCG AS NEEDED
     Route: 055
     Dates: start: 20060101
  6. PREDNISONE TAB [Suspect]
     Indication: DRUG USE FOR UNKNOWN INDICATION
     Route: 048
     Dates: start: 20040101, end: 20080906
  7. PREDNISONE TAB [Suspect]
     Dates: start: 20080821, end: 20080906
  8. METHYLPREDNISOLONE 4MG TAB [Suspect]
     Indication: DRUG USE FOR UNKNOWN INDICATION
     Route: 042
     Dates: start: 20040101
  9. OLANZAPINE [Suspect]
     Indication: DRUG USE FOR UNKNOWN INDICATION
     Dates: start: 20080901, end: 20080901
  10. QUETIAPINE FUMARATE [Suspect]
     Indication: DRUG USE FOR UNKNOWN INDICATION
     Dates: start: 20080901, end: 20080901
  11. CHLORMEZANONE [Concomitant]
     Indication: DRUG USE FOR UNKNOWN INDICATION
  12. FLUTICASONE PROPIONATE [Concomitant]
     Indication: DRUG USE FOR UNKNOWN INDICATION
  13. SERETIDE [Concomitant]
     Indication: DRUG USE FOR UNKNOWN INDICATION
  14. IPRATROPIUM BROMIDE [Concomitant]
     Indication: DRUG USE FOR UNKNOWN INDICATION
  15. MONTELUKAST SODIUM [Concomitant]
     Indication: DRUG USE FOR UNKNOWN INDICATION
     Dosage: TWO WEEK TAPER

REACTIONS (8)
  - BREATH SOUNDS ABNORMAL [None]
  - CHEST X-RAY ABNORMAL [None]
  - CLOSTRIDIAL INFECTION [None]
  - DIARRHOEA [None]
  - FEELING ABNORMAL [None]
  - NAUSEA [None]
  - PYREXIA [None]
  - TREATMENT NONCOMPLIANCE [None]
